FAERS Safety Report 4289074-9 (Version None)
Quarter: 2004Q1

REPORT INFORMATION
  Report Type: 
  Country: None (occurrence: None)
  Receive Date: 20040130
  Receipt Date: 20031103
  Transmission Date: 20041129
  Serious: No
  Sender: FDA-Public Use
  Company Number: WAES 0311USA00163

PATIENT
  Age: 16 Year
  Sex: Female

DRUGS (9)
  1. EMEND [Suspect]
     Indication: CHEMOTHERAPY
     Dosage: PO
     Route: 048
     Dates: start: 20030101
  2. EMEND [Suspect]
     Indication: PROPHYLAXIS
     Dosage: PO
     Route: 048
     Dates: start: 20030101
  3. ATIVAN [Concomitant]
  4. CELEXA [Concomitant]
  5. COLACE [Concomitant]
  6. NEXIUM [Concomitant]
  7. LEUCOVORIN CALCIUM [Concomitant]
  8. METHOTREXATE [Concomitant]
  9. PROMETHAZINE [Concomitant]

REACTIONS (1)
  - PANCREATITIS [None]
